FAERS Safety Report 23902661 (Version 1)
Quarter: 2024Q2

REPORT INFORMATION
  Report Type: Spontaneous
  Country: PH (occurrence: PH)
  Receive Date: 20240527
  Receipt Date: 20240527
  Transmission Date: 20240716
  Serious: Yes (Hospitalization, Other)
  Sender: FDA-Public Use
  Company Number: PH-STRIDES ARCOLAB LIMITED-2024SP006048

PATIENT
  Age: 4 Decade
  Sex: Male

DRUGS (2)
  1. PREDNISOLONE [Suspect]
     Active Substance: PREDNISOLONE
     Indication: Rheumatoid arthritis
     Dosage: UNK, LOW-DOSE
     Route: 065
  2. TESTOSTERONE [Suspect]
     Active Substance: TESTOSTERONE
     Indication: Hypogonadism
     Dosage: UNK
     Route: 065

REACTIONS (3)
  - Insulinoma [Recovered/Resolved]
  - Unmasking of previously unidentified disease [Recovered/Resolved]
  - Hypoglycaemia unawareness [Recovered/Resolved]
